FAERS Safety Report 6528890-7 (Version None)
Quarter: 2010Q1

REPORT INFORMATION
  Report Type: 
  Country: None (occurrence: None)
  Receive Date: 20100106
  Receipt Date: 20091221
  Transmission Date: 20100710
  Serious: Yes (Hospitalization, Other)
  Sender: FDA-Public Use
  Company Number: PHHY2009JP58561

PATIENT
  Sex: Male
  Weight: 67 kg

DRUGS (15)
  1. DIOVAN [Suspect]
     Indication: HYPERTENSION
     Dosage: 80 MG, QD
     Route: 048
     Dates: start: 20080318
  2. ATELEC [Concomitant]
     Indication: HYPERTENSION
     Route: 048
     Dates: start: 20060221
  3. CALCIUM POLYSTYRENE SULFONATE [Concomitant]
     Route: 048
     Dates: start: 20090113, end: 20090127
  4. PIPSISSEWA EXTRACT/JAPANESE ASPEN EXTRACT COMBINED DRUG [Concomitant]
     Dosage: 6 DF, UNK
     Route: 048
     Dates: start: 20090113, end: 20090122
  5. URIEF [Concomitant]
     Route: 048
     Dates: start: 20090113, end: 20090122
  6. LIMAPROST [Concomitant]
     Route: 048
     Dates: start: 20090316
  7. MECOBALAMIN [Concomitant]
     Route: 048
     Dates: start: 20090316
  8. ZOPICLONE [Concomitant]
     Route: 048
     Dates: start: 20070827
  9. ALOSENN [Concomitant]
     Route: 048
     Dates: start: 20030220
  10. PLAVIX [Concomitant]
     Route: 048
     Dates: start: 20080318
  11. CEFAZOLIN SODIUM [Concomitant]
     Dosage: 2 G, UNK
     Dates: start: 20081208, end: 20081221
  12. FLOMOX [Concomitant]
     Route: 048
     Dates: start: 20081222, end: 20090120
  13. LOXOPROFEN SODIUM [Concomitant]
     Route: 048
     Dates: start: 20081207, end: 20090315
  14. LANSOPRAZOLE [Concomitant]
     Route: 048
     Dates: start: 20081207, end: 20090315
  15. MAGLAX [Concomitant]
     Dosage: 990 MG, 1500 MG
     Route: 048
     Dates: start: 20081217, end: 20090126

REACTIONS (4)
  - BACTERIAL INFECTION [None]
  - BLOOD POTASSIUM INCREASED [None]
  - BLOOD PRESSURE INCREASED [None]
  - MYELITIS [None]
